FAERS Safety Report 4855543-3 (Version None)
Quarter: 2005Q4

REPORT INFORMATION
  Report Type: 
  Country: None (occurrence: None)
  Receive Date: 20051214
  Receipt Date: 20051201
  Transmission Date: 20060501
  Serious: Yes (Hospitalization)
  Sender: FDA-Public Use
  Company Number: WAES 0512GBR00027

PATIENT
  Age: 63 Year
  Sex: Male

DRUGS (1)
  1. VIOXX [Suspect]
     Indication: NEOPLASM PROPHYLAXIS
     Dosage: 25 MG/DAILY, PO
     Route: 048
     Dates: start: 20040122, end: 20041001

REACTIONS (1)
  - NEOPLASM [None]
